FAERS Safety Report 24640542 (Version 1)
Quarter: 2024Q4

REPORT INFORMATION
  Report Type: Other
  Country: ES (occurrence: ES)
  Receive Date: 20241120
  Receipt Date: 20241120
  Transmission Date: 20250115
  Serious: Yes (Hospitalization)
  Sender: ZYDUS PHARM
  Company Number: None

PATIENT

DRUGS (4)
  1. ACETAMINOPHEN [Interacting]
     Active Substance: ACETAMINOPHEN
     Indication: Suicide attempt
     Dosage: 30000 MILLIGRAM
     Route: 048
     Dates: start: 20040914, end: 20240914
  2. DEXKETOPROFEN [Interacting]
     Active Substance: DEXKETOPROFEN
     Indication: Suicide attempt
     Dosage: 250 MILLIGRAM, 1 TOTAL
     Route: 048
     Dates: start: 20240914, end: 20240914
  3. EBASTINE [Interacting]
     Active Substance: EBASTINE
     Indication: Suicide attempt
     Dosage: UNK
     Route: 048
     Dates: start: 20240914, end: 20240914
  4. TRAZODONE HYDROCHLORIDE [Interacting]
     Active Substance: TRAZODONE HYDROCHLORIDE
     Indication: Suicide attempt
     Dosage: 3 GRAM, 1 TOTAL
     Route: 048
     Dates: start: 20240914, end: 20240914

REACTIONS (2)
  - Hyperamylasaemia [Recovered/Resolved]
  - Somnolence [Recovered/Resolved]

NARRATIVE: CASE EVENT DATE: 20240914
